FAERS Safety Report 21398184 (Version 1)
Quarter: 2022Q3

REPORT INFORMATION
  Report Type: Spontaneous
  Country: US (occurrence: US)
  Receive Date: 20220930
  Receipt Date: 20220930
  Transmission Date: 20221026
  Serious: No
  Sender: FDA-Public Use
  Company Number: US-SA-SAC20220929001822

PATIENT
  Age: 55 Year
  Sex: Female
  Weight: 53 kg

DRUGS (2)
  1. AUBAGIO [Suspect]
     Active Substance: TERIFLUNOMIDE
     Indication: Multiple sclerosis
     Dosage: 14MG,QD
     Route: 048
  2. OCTREOTIDE [Concomitant]
     Active Substance: OCTREOTIDE

REACTIONS (1)
  - Illness [Unknown]
